FAERS Safety Report 9506138 (Version 1)
Quarter: 2013Q1

REPORT INFORMATION
  Report Type: Spontaneous
  Country: US (occurrence: None)
  Receive Date: 20130301
  Receipt Date: 20130301
  Transmission Date: 20140127
  Serious: Yes (Other)
  Sender: FDA-Public Use
  Company Number: PHEH2012US012473

PATIENT
  Age: 48 Year
  Sex: Male

DRUGS (1)
  1. TEGRETOL-XR [Suspect]
     Dates: start: 2005

REACTIONS (1)
  - Thrombosis [None]
